FAERS Safety Report 9369144 (Version 1)
Quarter: 2013Q2

REPORT INFORMATION
  Report Type: Spontaneous
  Country: FR (occurrence: FR)
  Receive Date: 20130626
  Receipt Date: 20130626
  Transmission Date: 20140414
  Serious: Yes (Life-Threatening)
  Sender: FDA-Public Use
  Company Number: PHHY2013FR065220

PATIENT
  Age: 63 Year
  Sex: Male

DRUGS (2)
  1. VOLTARENE [Suspect]
     Indication: PAIN
     Dosage: 2 DF, QD
     Route: 048
     Dates: end: 20130312
  2. VALSARTAN/HYDROCHLOORTHIAZIDE [Concomitant]
     Indication: HYPERTENSION
     Dosage: UNK UKN, UNK
     Route: 048

REACTIONS (2)
  - Shock haemorrhagic [Recovered/Resolved]
  - Gastric ulcer [Unknown]
